FAERS Safety Report 21828783 (Version 1)
Quarter: 2023Q1

REPORT INFORMATION
  Report Type: Report from Study
  Country: US (occurrence: US)
  Receive Date: 20230106
  Receipt Date: 20230106
  Transmission Date: 20230418
  Serious: No
  Sender: FDA-Public Use
  Company Number: US-ABBVIE-4215471

PATIENT
  Age: 48 Year
  Sex: Female

DRUGS (1)
  1. SKYRIZI [Suspect]
     Active Substance: RISANKIZUMAB-RZAA
     Indication: Psoriasis
     Route: 058
     Dates: start: 20220915

REACTIONS (7)
  - Fall [Unknown]
  - Psoriasis [Recovering/Resolving]
  - Wound complication [Unknown]
  - Limb injury [Unknown]
  - Erythema [Unknown]
  - Feeling hot [Unknown]
  - Swelling [Unknown]

NARRATIVE: CASE EVENT DATE: 20221001
